FAERS Safety Report 5136406-5 (Version None)
Quarter: 2006Q4

REPORT INFORMATION
  Report Type: 
  Country: None (occurrence: None)
  Receive Date: 20061027
  Receipt Date: 20060824
  Transmission Date: 20070319
  Serious: Yes (Hospitalization)
  Sender: FDA-Public Use
  Company Number: PHBS2006JP12909

PATIENT
  Age: 67 Year
  Sex: Female

DRUGS (5)
  1. ZOMETA [Suspect]
     Indication: HYPERCALCAEMIA
     Dosage: 4 MG, UNK
     Route: 042
     Dates: start: 20060617
  2. ALTAT [Concomitant]
     Indication: GASTRIC ULCER
     Dosage: 75 MG/D
     Route: 042
     Dates: start: 20060616, end: 20060717
  3. HYPEN [Concomitant]
     Dosage: 400 MG/D
     Route: 048
     Dates: start: 20060630, end: 20060823
  4. DEPAS [Concomitant]
     Dosage: 0.5 MG/D
     Route: 048
     Dates: start: 20060630
  5. ELCITONIN [Suspect]
     Indication: HYPERCALCAEMIA
     Dosage: 80 DF, UNK
     Route: 042
     Dates: start: 20060617, end: 20060619

REACTIONS (20)
  - ALANINE AMINOTRANSFERASE INCREASED [None]
  - ANAEMIA [None]
  - ASPARTATE AMINOTRANSFERASE INCREASED [None]
  - BLOOD ALBUMIN DECREASED [None]
  - BLOOD ALKALINE PHOSPHATASE INCREASED [None]
  - BLOOD CREATININE INCREASED [None]
  - BLOOD LACTATE DEHYDROGENASE INCREASED [None]
  - BLOOD POTASSIUM DECREASED [None]
  - BLOOD UREA INCREASED [None]
  - DEPRESSED LEVEL OF CONSCIOUSNESS [None]
  - DIZZINESS [None]
  - GAMMA-GLUTAMYLTRANSFERASE INCREASED [None]
  - HAEMATOCRIT DECREASED [None]
  - HAEMOGLOBIN DECREASED [None]
  - HYPOAESTHESIA [None]
  - HYPOCALCAEMIA [None]
  - MALAISE [None]
  - NUTRITIONAL CONDITION ABNORMAL [None]
  - RED BLOOD CELL COUNT DECREASED [None]
  - WHITE BLOOD CELL COUNT INCREASED [None]
